FAERS Safety Report 10601465 (Version 3)
Quarter: 2015Q1

REPORT INFORMATION
  Report Type: Spontaneous
  Country: US (occurrence: US)
  Receive Date: 20141124
  Receipt Date: 20150108
  Transmission Date: 20150720
  Serious: No
  Sender: FDA-Public Use
  Company Number: US-PFIZER INC-2014321204

PATIENT
  Age: 34 Year
  Sex: Female

DRUGS (2)
  1. PREMARIN [Suspect]
     Active Substance: ESTROGENS, CONJUGATED
     Indication: VULVOVAGINAL DRYNESS
     Dosage: 1/2- 1 GRAM , 2X/WEEK
     Dates: start: 201411
  2. TESTOSTERONE. [Concomitant]
     Active Substance: TESTOSTERONE
     Dosage: UNK
     Dates: start: 201411

REACTIONS (3)
  - Burning sensation [Recovered/Resolved]
  - Drug hypersensitivity [Recovered/Resolved]
  - Pruritus [Recovered/Resolved]
